FAERS Safety Report 23297051 (Version 3)
Quarter: 2024Q1

REPORT INFORMATION
  Report Type: Spontaneous
  Country: US (occurrence: US)
  Receive Date: 20231214
  Receipt Date: 20240307
  Transmission Date: 20240410
  Serious: Yes (Hospitalization, Other)
  Sender: FDA-Public Use
  Company Number: US-PFIZER INC-PV202300200961

PATIENT
  Age: 73 Year
  Sex: Female
  Weight: 52.608 kg

DRUGS (5)
  1. XELJANZ XR [Suspect]
     Active Substance: TOFACITINIB CITRATE
     Indication: Arthritis
     Dosage: 11MG TAB 24 ONCE A DAY
     Dates: start: 20191115
  2. ACETAMINOPHEN [Concomitant]
     Active Substance: ACETAMINOPHEN
     Dosage: 650 MG
     Dates: start: 2018
  3. CELECOXIB [Concomitant]
     Active Substance: CELECOXIB
     Dosage: 200 MG 1 TABLET 2XDAY
     Dates: start: 2020
  4. GABAPENTIN [Concomitant]
     Active Substance: GABAPENTIN
     Dosage: 400 MG 1 TABLET 3XDAILY
     Dates: start: 2021
  5. DULOXETINE [Concomitant]
     Active Substance: DULOXETINE
     Dosage: 60 MG 1 TABLET DAILY
     Dates: start: 2023

REACTIONS (3)
  - Arthritis [Recovered/Resolved]
  - CREST syndrome [Unknown]
  - Scleroderma [Unknown]
